FAERS Safety Report 11323076 (Version 3)
Quarter: 2015Q3

REPORT INFORMATION
  Report Type: Report from Study
  Country: GB (occurrence: GB)
  Receive Date: 20150730
  Receipt Date: 20150821
  Transmission Date: 20151125
  Serious: Yes (Hospitalization, Other)
  Sender: FDA-Public Use
  Company Number: GB-ROCHE-1505237

PATIENT
  Age: 74 Year
  Sex: Female
  Weight: 56 kg

DRUGS (11)
  1. CAPECITABINE. [Concomitant]
     Active Substance: CAPECITABINE
     Route: 065
     Dates: start: 20140404, end: 20140829
  2. SENNA [Concomitant]
     Active Substance: SENNA LEAF\SENNOSIDES\SENNOSIDES A AND B
     Dosage: PRN
     Route: 065
     Dates: start: 20140825
  3. FERROUS FUMARATE [Concomitant]
     Active Substance: FERROUS FUMARATE
     Route: 065
     Dates: start: 20140825
  4. GLYCERINE SUPPOSITORY [Concomitant]
     Dosage: 1-2 PRN
     Route: 065
     Dates: start: 20140825
  5. BEVACIZUMAB [Suspect]
     Active Substance: BEVACIZUMAB
     Indication: COLON CANCER
     Dosage: MOST RECENT DOSE PRIOR TO THE EVENT WAS ON 25/APR/2014
     Route: 042
     Dates: start: 20140404, end: 20140515
  6. OXALIPLATIN. [Concomitant]
     Active Substance: OXALIPLATIN
     Route: 065
     Dates: start: 20140404, end: 20140815
  7. DEXAMETHASONE. [Concomitant]
     Active Substance: DEXAMETHASONE
     Route: 065
     Dates: start: 20140404, end: 20140815
  8. ONDASETRON [Concomitant]
     Active Substance: ONDANSETRON
     Route: 065
     Dates: start: 20140404, end: 20140815
  9. ONDASETRON [Concomitant]
     Active Substance: ONDANSETRON
     Route: 065
     Dates: start: 20140405, end: 20140818
  10. OXALIPLATIN. [Concomitant]
     Active Substance: OXALIPLATIN
     Route: 065
     Dates: start: 20140425, end: 20140815
  11. DOCUSATE SODIUM. [Concomitant]
     Active Substance: DOCUSATE SODIUM
     Dosage: PRN
     Route: 065
     Dates: start: 20140825

REACTIONS (2)
  - Gastrointestinal disorder [Recovered/Resolved]
  - Intestinal perforation [Recovered/Resolved]

NARRATIVE: CASE EVENT DATE: 20140529
